FAERS Safety Report 19644659 (Version 2)
Quarter: 2021Q3

REPORT INFORMATION
  Report Type: Spontaneous
  Country: JP (occurrence: JP)
  Receive Date: 20210802
  Receipt Date: 20210908
  Transmission Date: 20211014
  Serious: Yes (Other)
  Sender: FDA-Public Use
  Company Number: JP-AMGEN-JPNSP2021117599

PATIENT
  Age: 81 Year
  Sex: Male

DRUGS (1)
  1. NESP [Suspect]
     Active Substance: DARBEPOETIN ALFA
     Indication: MYELODYSPLASTIC SYNDROME
     Dosage: 240 UG, 1X/WEEK
     Route: 065

REACTIONS (1)
  - Erythropoiesis abnormal [Recovering/Resolving]
